FAERS Safety Report 25664788 (Version 1)
Quarter: 2025Q3

REPORT INFORMATION
  Report Type: Report from Study
  Country: IN (occurrence: IN)
  Receive Date: 20250811
  Receipt Date: 20250811
  Transmission Date: 20251021
  Serious: Yes (Death, Other)
  Sender: DAIICHI
  Company Number: IN-AstraZeneca-CH-00925674A

PATIENT
  Age: 49 Year
  Sex: Male
  Weight: 42 kg

DRUGS (1)
  1. ENHERTU [Suspect]
     Active Substance: FAM-TRASTUZUMAB DERUXTECAN-NXKI
     Indication: Adenocarcinoma
     Dosage: 200 MG, ONCE EVERY 3 WK
     Route: 041

REACTIONS (2)
  - Protein total decreased [Fatal]
  - Ascites [Fatal]

NARRATIVE: CASE EVENT DATE: 20250719
